FAERS Safety Report 21741254 (Version 1)
Quarter: 2022Q4

REPORT INFORMATION
  Report Type: Spontaneous
  Country: US (occurrence: US)
  Receive Date: 20221216
  Receipt Date: 20221216
  Transmission Date: 20230113
  Serious: No
  Sender: FDA-Public Use
  Company Number: US-PFIZER INC-PV202200124098

PATIENT
  Age: 44 Year
  Sex: Female

DRUGS (3)
  1. IBRANCE [Suspect]
     Active Substance: PALBOCICLIB
  2. CELEXA [Concomitant]
     Active Substance: CITALOPRAM HYDROBROMIDE
  3. LETROZOLE [Concomitant]
     Active Substance: LETROZOLE

REACTIONS (9)
  - Contusion [Unknown]
  - Impaired healing [Unknown]
  - Skin injury [Unknown]
  - Menopause [Unknown]
  - Alopecia [Unknown]
  - Weight loss poor [Unknown]
  - Hot flush [Unknown]
  - Night sweats [Unknown]
  - Mood altered [Unknown]
